FAERS Safety Report 6588757-5 (Version None)
Quarter: 2010Q1

REPORT INFORMATION
  Report Type: 
  Country: None (occurrence: None)
  Receive Date: 20100218
  Receipt Date: 20100208
  Transmission Date: 20100710
  Serious: Yes (Hospitalization)
  Sender: FDA-Public Use
  Company Number: US-JNJFOC-20091207788

PATIENT
  Sex: Male
  Weight: 76.2 kg

DRUGS (6)
  1. REMICADE [Suspect]
     Indication: ANKYLOSING SPONDYLITIS
     Route: 042
  2. PRILOSEC [Concomitant]
     Indication: GASTROOESOPHAGEAL REFLUX DISEASE
  3. LORTAB [Concomitant]
     Indication: PAIN
  4. ISONIAZID [Concomitant]
     Indication: ANTIBIOTIC PROPHYLAXIS
  5. PYRIDOXINE [Concomitant]
     Indication: ANTIBIOTIC PROPHYLAXIS
     Dosage: DOSE IS 50
  6. FLEXERIL [Concomitant]
     Indication: MUSCLE SPASMS
     Dosage: DOSE IS 50

REACTIONS (1)
  - ALLERGY TO ARTHROPOD BITE [None]
